FAERS Safety Report 5163537-6 (Version None)
Quarter: 2006Q4

REPORT INFORMATION
  Report Type: 
  Country: None (occurrence: None)
  Receive Date: 20061204
  Receipt Date: 20060920
  Transmission Date: 20070319
  Serious: Yes (Other)
  Sender: FDA-Public Use
  Company Number: US-BRISTOL-MYERS SQUIBB COMPANY-13520697

PATIENT

DRUGS (1)
  1. KENALOG [Suspect]
     Route: 031

REACTIONS (1)
  - EYE INFLAMMATION [None]
